FAERS Safety Report 5345945-3 (Version None)
Quarter: 2007Q2

REPORT INFORMATION
  Report Type: 
  Country: None (occurrence: None)
  Receive Date: 20070605
  Receipt Date: 20070531
  Transmission Date: 20071010
  Serious: Yes (Hospitalization)
  Sender: FDA-Public Use
  Company Number: B0473458A

PATIENT
  Age: 94 Year
  Sex: Female
  Weight: 50 kg

DRUGS (5)
  1. ARIXTRA [Suspect]
     Indication: VENOUS THROMBOSIS
     Dosage: 5MG PER DAY
     Route: 058
     Dates: start: 20070205, end: 20070302
  2. LASILIX RETARD [Concomitant]
     Dosage: 60MG PER DAY
     Route: 048
  3. PLAVIX [Concomitant]
     Indication: ANGINA PECTORIS
     Dosage: 75MG PER DAY
     Route: 048
     Dates: end: 20070302
  4. CORDARONE [Concomitant]
     Route: 048
  5. DISCOTRINE [Concomitant]
     Indication: ANGINA PECTORIS
     Route: 061

REACTIONS (2)
  - HAEMATOMA [None]
  - RED BLOOD CELL COUNT DECREASED [None]
